FAERS Safety Report 7120657-4 (Version None)
Quarter: 2010Q4

REPORT INFORMATION
  Report Type: 
  Country: None (occurrence: None)
  Receive Date: 20101124
  Receipt Date: 20101117
  Transmission Date: 20110411
  Serious: Yes (Other)
  Sender: FDA-Public Use
  Company Number: US-BAYER-200934015NA

PATIENT
  Age: 30 Year
  Sex: Female
  Weight: 78 kg

DRUGS (1)
  1. MIRENA [Suspect]
     Indication: CONTRACEPTION
     Route: 015
     Dates: start: 20060501, end: 20090713

REACTIONS (2)
  - ABORTION SPONTANEOUS [None]
  - PREGNANCY WITH CONTRACEPTIVE DEVICE [None]
